FAERS Safety Report 6795805-6 (Version None)
Quarter: 2010Q2

REPORT INFORMATION
  Report Type: 
  Country: None (occurrence: None)
  Receive Date: 20100625
  Receipt Date: 20100617
  Transmission Date: 20101027
  Serious: Yes (Hospitalization)
  Sender: FDA-Public Use
  Company Number: A0789951A

PATIENT
  Age: 56 Year
  Sex: Male
  Weight: 159.1 kg

DRUGS (12)
  1. AVANDIA [Suspect]
     Indication: DIABETES MELLITUS
     Dosage: 8MG PER DAY
     Route: 048
     Dates: start: 20050601, end: 20070531
  2. AVANDAMET [Suspect]
     Indication: DIABETES MELLITUS
     Route: 048
     Dates: start: 20030301, end: 20050601
  3. METFORMIN [Concomitant]
     Dosage: 500MG TWICE PER DAY
     Dates: start: 20030301, end: 20050601
  4. GLUCOTROL XL [Concomitant]
  5. ALBUTEROL [Concomitant]
  6. LISINOPRIL [Concomitant]
  7. GEMFIBROZIL [Concomitant]
  8. ATENOLOL [Concomitant]
  9. PROTONIX [Concomitant]
  10. PROVENTIL [Concomitant]
  11. ADVAIR DISKUS 100/50 [Concomitant]
  12. ACCUPRIL [Concomitant]

REACTIONS (5)
  - CARDIAC FAILURE CONGESTIVE [None]
  - CARDIOVASCULAR DISORDER [None]
  - CORONARY ARTERY DISEASE [None]
  - INTRACARDIAC THROMBUS [None]
  - MYOCARDIAL INFARCTION [None]
